FAERS Safety Report 5522004-8 (Version None)
Quarter: 2007Q4

REPORT INFORMATION
  Report Type: 
  Country: None (occurrence: None)
  Receive Date: 20071120
  Receipt Date: 20071109
  Transmission Date: 20080405
  Serious: Yes (Hospitalization)
  Sender: FDA-Public Use
  Company Number: US-AMGEN-STX239108

PATIENT
  Sex: Female
  Weight: 99.9 kg

DRUGS (2)
  1. ENBREL [Suspect]
     Indication: PSORIASIS
     Dates: start: 20050411, end: 20051215
  2. ENBREL [Suspect]
     Indication: PSORIATIC ARTHROPATHY

REACTIONS (7)
  - CARBOHYDRATE ANTIGEN 125 INCREASED [None]
  - PANCYTOPENIA [None]
  - PERITONEAL TUBERCULOSIS [None]
  - PRURITUS [None]
  - PSORIASIS [None]
  - PSORIATIC ARTHROPATHY [None]
  - RASH [None]
